FAERS Safety Report 13882237 (Version 1)
Quarter: 2017Q3

REPORT INFORMATION
  Report Type: Spontaneous
  Country: US (occurrence: US)
  Receive Date: 20170818
  Receipt Date: 20170818
  Transmission Date: 20171127
  Serious: Yes (Hospitalization)
  Sender: FDA-Public Use
  Company Number: US-BAYER-2017-156480

PATIENT
  Age: 67 Year
  Sex: Female

DRUGS (1)
  1. GADAVIST [Suspect]
     Active Substance: GADOBUTROL
     Indication: ABDOMINAL ABSCESS
     Dosage: 7.5 ML, ONCE
     Dates: start: 20170809, end: 20170809

REACTIONS (5)
  - Dyspnoea [None]
  - Swelling face [Recovered/Resolved]
  - Tachycardia [None]
  - Hypoaesthesia [None]
  - Product use in unapproved indication [None]

NARRATIVE: CASE EVENT DATE: 20170809
